FAERS Safety Report 23205774 (Version 1)
Quarter: 2023Q4

REPORT INFORMATION
  Report Type: Report from Study
  Country: FR (occurrence: FR)
  Receive Date: 20231120
  Receipt Date: 20231120
  Transmission Date: 20240109
  Serious: Yes (Death)
  Sender: FDA-Public Use
  Company Number: FR-JNJFOC-20231072940

PATIENT
  Age: 74 Year
  Sex: Female

DRUGS (5)
  1. LENALIDOMIDE [Suspect]
     Active Substance: LENALIDOMIDE
     Indication: Plasma cell myeloma
     Dosage: 7.5 MILLIGRAM, Q3W
     Route: 065
     Dates: end: 20220901
  2. LENALIDOMIDE [Suspect]
     Active Substance: LENALIDOMIDE
     Dosage: 5MG,Q3W (7 DOSES,3 WEEK/CYCLE 1 DAY/2)
     Route: 065
  3. DEXAMETHASONE [Suspect]
     Active Substance: DEXAMETHASONE
     Indication: Plasma cell myeloma
     Dosage: 20 MILLIGRAM, MONTHLY
     Route: 065
     Dates: end: 20220901
  4. DARATUMUMAB [Suspect]
     Active Substance: DARATUMUMAB
     Indication: Plasma cell myeloma
     Dosage: 1800 MILLIGRAM, QW
     Route: 065
     Dates: end: 20220901
  5. DARATUMUMAB [Suspect]
     Active Substance: DARATUMUMAB
     Dosage: 1000 MILLIGRAM, Q3W
     Route: 065

REACTIONS (3)
  - Septic shock [Fatal]
  - Intentional product use issue [Unknown]
  - Off label use [Unknown]
